FAERS Safety Report 17866170 (Version 5)
Quarter: 2020Q3

REPORT INFORMATION
  Report Type: Spontaneous
  Country: GB (occurrence: GB)
  Receive Date: 20200605
  Receipt Date: 20200925
  Transmission Date: 20201103
  Serious: Yes (Hospitalization, Disabling, Other)
  Sender: FDA-Public Use
  Company Number: GB-SA-2020SA137788

PATIENT

DRUGS (34)
  1. MESNA. [Concomitant]
     Active Substance: MESNA
     Dosage: 18.8 G
     Dates: start: 20191206
  2. AMLODIPINE [Concomitant]
     Active Substance: AMLODIPINE BESYLATE
     Indication: HYPERTENSION
     Dosage: 10 MG, QD
     Route: 048
     Dates: start: 20191227, end: 20200109
  3. AMLODIPINE [Concomitant]
     Active Substance: AMLODIPINE BESYLATE
     Dosage: 10 MG, QD
     Route: 048
     Dates: start: 20200218
  4. PREDNISOLONE. [Concomitant]
     Active Substance: PREDNISOLONE
     Dosage: 40 MG, QD
     Route: 048
     Dates: start: 20191227, end: 20191228
  5. PREDNISOLONE. [Concomitant]
     Active Substance: PREDNISOLONE
     Dosage: 15 MG, QD
     Route: 048
     Dates: start: 20200304, end: 20200310
  6. TRAMADOL. [Concomitant]
     Active Substance: TRAMADOL
     Dosage: 100 MG, QD
     Dates: start: 20200218
  7. G?CSF [Concomitant]
     Active Substance: GRANULOCYTE COLONY-STIMULATING FACTOR NOS
     Dosage: 480 UG, QD
     Dates: start: 20191214
  8. PREDNISOLONE. [Concomitant]
     Active Substance: PREDNISOLONE
     Dosage: 10 MG, QD
     Route: 048
     Dates: start: 20200112, end: 20200118
  9. PROCTOSEDYL [CINCHOCAINE HYDROCHLORIDE;HYDROCORTISONE] [Concomitant]
     Indication: PROCTALGIA
     Dosage: 1 DOSE, BID
     Route: 054
     Dates: start: 20191227, end: 20200109
  10. LACTULOSE. [Concomitant]
     Active Substance: LACTULOSE
     Dosage: 10 ML, BID
     Route: 048
     Dates: start: 20191227, end: 20200102
  11. CYCLOPHOSPHAMIDE. [Concomitant]
     Active Substance: CYCLOPHOSPHAMIDE
     Dosage: 4720 MG, QD
     Dates: start: 20191206
  12. METHYLPREDNISOLONE. [Concomitant]
     Active Substance: METHYLPREDNISOLONE
     Dosage: 162 MG, QD
     Dates: start: 20191206
  13. PREDNISOLONE. [Concomitant]
     Active Substance: PREDNISOLONE
     Dosage: 30 MG, QD
     Route: 048
     Dates: start: 20191229, end: 20191230
  14. PREDNISOLONE. [Concomitant]
     Active Substance: PREDNISOLONE
     Dosage: 25 MG, QD
     Route: 048
     Dates: start: 20200105, end: 20200111
  15. ACICLOVIR [Concomitant]
     Active Substance: ACYCLOVIR
     Indication: ANTIBIOTIC PROPHYLAXIS
     Dosage: 400 MG, BID
     Route: 048
     Dates: start: 20191227, end: 20200109
  16. PREDNISOLONE. [Concomitant]
     Active Substance: PREDNISOLONE
     Dosage: 25 MG, QD
     Route: 048
     Dates: start: 20200219, end: 20200225
  17. TRAMADOL. [Concomitant]
     Active Substance: TRAMADOL
     Indication: PAIN
     Dosage: 100 MG, QID
     Route: 048
     Dates: start: 20191227, end: 20200109
  18. PREDNISOLONE. [Concomitant]
     Active Substance: PREDNISOLONE
     Dosage: 5 MG, QD
     Route: 048
     Dates: start: 20200129, end: 20200204
  19. PREDNISOLONE. [Concomitant]
     Active Substance: PREDNISOLONE
     Dosage: 10 MG, QD
     Route: 048
     Dates: start: 20200311, end: 20200317
  20. PREDNISOLONE. [Concomitant]
     Active Substance: PREDNISOLONE
     Dosage: 5 MG, QD
     Route: 048
     Dates: start: 20200318, end: 20200324
  21. LANSOPRAZOLE. [Concomitant]
     Active Substance: LANSOPRAZOLE
     Indication: GASTRIC DISORDER
     Dosage: 30 MG, QD
     Route: 048
     Dates: start: 20191227, end: 20200109
  22. FRESUBIN ENERGY [CARBOHYDRATES NOS;FATS NOS;MINERALS NOS;PROTEINS NOS; [Concomitant]
     Indication: SUPPLEMENTATION THERAPY
     Dosage: UNK, TID
     Route: 048
     Dates: start: 20191227, end: 20200109
  23. BONJELA [CETALKONIUM CHLORIDE;CHOLINE SALICYLATE;MENTHOL] [Concomitant]
     Indication: ORAL PAIN
     Dosage: 1 DF, QID (1 DOSE)
     Route: 061
     Dates: start: 20200218
  24. PREDNISOLONE. [Concomitant]
     Active Substance: PREDNISOLONE
     Dosage: 20 MG, QD
     Route: 048
     Dates: start: 20200226, end: 20200303
  25. LOSARTAN. [Concomitant]
     Active Substance: LOSARTAN
     Indication: HYPERTENSION
     Dosage: 25 MG, QD
     Route: 048
     Dates: start: 20191227, end: 20200109
  26. LOSARTAN. [Concomitant]
     Active Substance: LOSARTAN
     Dosage: 75 MG, QD
     Route: 048
     Dates: start: 20200218
  27. ACICLOVIR [Concomitant]
     Active Substance: ACYCLOVIR
     Dosage: 400 MG, BID
     Dates: start: 20200218
  28. PROCTOSEDYL [CINCHOCAINE HYDROCHLORIDE;HYDROCORTISONE] [Concomitant]
     Indication: DISCOMFORT
     Dosage: 1 DOSE, TID
     Route: 054
     Dates: start: 20200218
  29. BONJELA [CETALKONIUM CHLORIDE;CHOLINE SALICYLATE;MENTHOL] [Concomitant]
     Indication: ULCER
  30. PREDNISOLONE. [Concomitant]
     Active Substance: PREDNISOLONE
     Dosage: 15 MG, QD
     Route: 048
     Dates: start: 20200119, end: 20200128
  31. LANSOPRAZOLE. [Concomitant]
     Active Substance: LANSOPRAZOLE
     Dosage: 30 MG, QD
     Route: 048
  32. CAPHOSOL [CALCIUM CHLORIDE;SODIUM PHOSPHATE DIBASIC;SODIUM PHOSPHATE M [Concomitant]
     Dosage: 1 DF, QID (1 DOSE)
     Dates: start: 20200218, end: 20200224
  33. THYMOGLOBULINE [Suspect]
     Active Substance: LAPINE T-LYMPHOCYTE IMMUNE GLOBULIN
     Indication: HAEMATOPOIETIC STEM CELL MOBILISATION
     Dosage: 205 MG, QD
     Route: 042
     Dates: start: 20191206, end: 20191209
  34. COTRIMOXAZOLE [Concomitant]
     Active Substance: SULFAMETHOXAZOLE\TRIMETHOPRIM
     Indication: ANTIBIOTIC PROPHYLAXIS
     Dosage: 960 MG, TID
     Route: 048
     Dates: start: 20200218

REACTIONS (15)
  - Endothelial dysfunction [Unknown]
  - Glomerular filtration rate decreased [Unknown]
  - Pyrexia [Recovered/Resolved]
  - Pneumocystis jirovecii pneumonia [Recovered/Resolved]
  - Epstein-Barr virus infection reactivation [Recovered/Resolved]
  - Thrombocytopenia [Unknown]
  - Blood lactate dehydrogenase increased [Unknown]
  - Cystitis [Unknown]
  - Thrombotic microangiopathy [Unknown]
  - Renal failure [Not Recovered/Not Resolved]
  - Cytomegalovirus infection reactivation [Recovered/Resolved]
  - Mucosal haemorrhage [Unknown]
  - Platelet count decreased [Unknown]
  - Dyspnoea [Recovered/Resolved]
  - Acute kidney injury [Not Recovered/Not Resolved]

NARRATIVE: CASE EVENT DATE: 20200501
